FAERS Safety Report 7865424-9 (Version None)
Quarter: 2011Q4

REPORT INFORMATION
  Report Type: 
  Country: None (occurrence: None)
  Receive Date: 20111028
  Receipt Date: 20101221
  Transmission Date: 20120403
  Serious: No
  Sender: FDA-Public Use
  Company Number: US-GLAXOSMITHKLINE-A0900991A

PATIENT
  Age: 35 Year
  Sex: Female

DRUGS (2)
  1. VITAMIN TAB [Concomitant]
  2. ADVAIR DISKUS 100/50 [Suspect]
     Indication: ASTHMA
     Route: 055
     Dates: start: 20090301

REACTIONS (4)
  - PARANASAL SINUS HYPERSECRETION [None]
  - SECRETION DISCHARGE [None]
  - DRUG INEFFECTIVE [None]
  - PRODUCT QUALITY ISSUE [None]
